FAERS Safety Report 7076386-9 (Version None)
Quarter: 2010Q4

REPORT INFORMATION
  Report Type: 
  Country: None (occurrence: None)
  Receive Date: 20101021
  Receipt Date: 20101011
  Transmission Date: 20110411
  Serious: Yes (Other)
  Sender: FDA-Public Use
  Company Number: 2010P1002007

PATIENT
  Age: 73 Year
  Sex: Female

DRUGS (1)
  1. METFORMIN (NO PREF. NAME) [Suspect]
     Indication: TYPE 2 DIABETES MELLITUS

REACTIONS (1)
  - LIVER INJURY [None]
